FAERS Safety Report 7333156-1 (Version None)
Quarter: 2011Q1

REPORT INFORMATION
  Report Type: 
  Country: None (occurrence: None)
  Receive Date: 20110222
  Receipt Date: 20110211
  Transmission Date: 20110831
  Serious: Yes (Life-Threatening, Other)
  Sender: FDA-Public Use
  Company Number: JHP201100031

PATIENT
  Age: 7 Year
  Sex: Male
  Weight: 16 kg

DRUGS (4)
  1. OXYGEN (OXYGEN) [Concomitant]
  2. KETALAR [Suspect]
     Indication: ANAESTHESIA
     Dosage: 15 MG, INTRAVENOUS
     Route: 042
  3. GLYCOPYRROLATE [Concomitant]
  4. MIDAZOLAM HYDROCHLORIDE [Concomitant]

REACTIONS (3)
  - PULMONARY OEDEMA [None]
  - LARYNGOSPASM [None]
  - LARYNGEAL OEDEMA [None]
